FAERS Safety Report 8623078-8 (Version None)
Quarter: 2012Q3

REPORT INFORMATION
  Report Type: 
  Country: None (occurrence: None)
  Receive Date: 20120827
  Receipt Date: 20120820
  Transmission Date: 20120928
  Serious: Yes (Hospitalization, Disabling)
  Sender: FDA-Public Use
  Company Number: JP-JNJFOC-20120600641

PATIENT
  Sex: Male
  Weight: 70 kg

DRUGS (7)
  1. REMICADE [Suspect]
     Indication: BEHCET'S SYNDROME
     Route: 042
     Dates: start: 20071101
  2. ADALAT [Concomitant]
     Indication: HYPERTENSION
     Route: 048
     Dates: start: 20111101, end: 20120611
  3. REMICADE [Suspect]
     Route: 042
  4. REMICADE [Suspect]
     Dosage: 18TH DOSE
     Route: 042
     Dates: start: 20120501
  5. UNKNOWN MEDICATION [Suspect]
     Indication: PRODUCT USED FOR UNKNOWN INDICATION
     Route: 065
  6. CELECTOL [Concomitant]
     Indication: HYPERTENSION
     Route: 048
     Dates: start: 20111101, end: 20120611
  7. PREDNISOLONE [Concomitant]
     Indication: BEHCET'S SYNDROME
     Route: 065
     Dates: end: 20120501

REACTIONS (2)
  - RENAL IMPAIRMENT [None]
  - TUBULOINTERSTITIAL NEPHRITIS [None]
